FAERS Safety Report 5337530-4 (Version None)
Quarter: 2007Q2

REPORT INFORMATION
  Report Type: 
  Country: None (occurrence: None)
  Receive Date: 20070529
  Receipt Date: 20070503
  Transmission Date: 20071010
  Serious: Yes (Disabling, Other)
  Sender: FDA-Public Use
  Company Number: FR-PFIZER INC-2003116105

PATIENT
  Sex: Female
  Weight: 50 kg

DRUGS (4)
  1. RELPAX [Suspect]
     Indication: MIGRAINE WITHOUT AURA
     Dosage: DAILY DOSE:80MG-FREQ:PRN
     Route: 065
     Dates: start: 20030101, end: 20031015
  2. RELPAX [Suspect]
     Indication: MIGRAINE
  3. HEPT-A-MYL [Suspect]
     Indication: HYPOTENSION
     Dosage: DAILY DOSE:760GRAM-FREQ:QID
     Route: 048
     Dates: start: 20031008, end: 20031026
  4. GINKO BILOBA [Suspect]
     Dosage: TEXT:UNKNOWN-FREQ:UNKNOWN
     Route: 048
     Dates: start: 20031011, end: 20031102

REACTIONS (46)
  - ACCOMMODATION DISORDER [None]
  - AGEUSIA [None]
  - AGGRESSION [None]
  - AMNESIA [None]
  - ANXIETY [None]
  - APHASIA [None]
  - ASTHENIA [None]
  - BALANCE DISORDER [None]
  - CEREBRAL ISCHAEMIA [None]
  - CEREBROVASCULAR ACCIDENT [None]
  - CLUMSINESS [None]
  - CONFUSIONAL STATE [None]
  - DIARRHOEA [None]
  - DISORIENTATION [None]
  - DISTURBANCE IN ATTENTION [None]
  - DRUG ADMINISTRATION ERROR [None]
  - DYSARTHRIA [None]
  - DYSGRAPHIA [None]
  - DYSMORPHISM [None]
  - EXTENSOR PLANTAR RESPONSE [None]
  - FACIAL PALSY [None]
  - FALL [None]
  - FATIGUE [None]
  - GAIT DISTURBANCE [None]
  - HAEMATOMA [None]
  - HYPOAESTHESIA [None]
  - HYPOTENSION [None]
  - IMPAIRED WORK ABILITY [None]
  - JOINT DISLOCATION [None]
  - LIP OEDEMA [None]
  - LOSS OF PROPRIOCEPTION [None]
  - MIGRAINE [None]
  - MOOD SWINGS [None]
  - MOTOR DYSFUNCTION [None]
  - MULTIPLE-DRUG RESISTANCE [None]
  - MYALGIA [None]
  - OVERDOSE [None]
  - PERSONALITY DISORDER [None]
  - SOCIAL PROBLEM [None]
  - SOMNOLENCE [None]
  - TINNITUS [None]
  - TOOTH FRACTURE [None]
  - TRANSIENT ISCHAEMIC ATTACK [None]
  - UNEVALUABLE EVENT [None]
  - VASOCONSTRICTION [None]
  - VISUAL DISTURBANCE [None]
